FAERS Safety Report 9044071 (Version 2)
Quarter: 2013Q1

REPORT INFORMATION
  Report Type: Spontaneous
  Country: US (occurrence: US)
  Receive Date: 20130130
  Receipt Date: 20130211
  Transmission Date: 20140127
  Serious: Yes (Hospitalization)
  Sender: FDA-Public Use
  Company Number: US-JNJFOC-20130114072

PATIENT
  Age: 52 Year
  Sex: Female
  Weight: 61.24 kg

DRUGS (2)
  1. ROGAINE FOR WOMEN REGULAR STRENGTH [Suspect]
     Route: 061
  2. ROGAINE FOR WOMEN REGULAR STRENGTH [Suspect]
     Indication: HAIR GROWTH ABNORMAL
     Dosage: THE DROPPER FULL
     Route: 061
     Dates: start: 201212

REACTIONS (3)
  - Heart rate increased [Not Recovered/Not Resolved]
  - Menorrhagia [Not Recovered/Not Resolved]
  - Wrong technique in drug usage process [Unknown]
